FAERS Safety Report 6369284-7 (Version None)
Quarter: 2009Q3

REPORT INFORMATION
  Report Type: 
  Country: None (occurrence: None)
  Receive Date: 20090916
  Receipt Date: 20090911
  Transmission Date: 20100115
  Serious: Yes (Death, Other)
  Sender: FDA-Public Use
  Company Number: 2009SP024172

PATIENT
  Age: 71 Year
  Sex: Female

DRUGS (2)
  1. DANAPAROID SODIUM (S-P) (DANAPAROID SODIUM) [Suspect]
     Indication: HEPARIN-INDUCED THROMBOCYTOPENIA
  2. LOW MOLECULAR WEIGHT HEPARIN (HEPARIN-FRACTION) [Suspect]
     Indication: PROPHYLAXIS

REACTIONS (5)
  - AMPUTATION [None]
  - ARTERIAL THROMBOSIS [None]
  - DEEP VEIN THROMBOSIS [None]
  - HEPARIN-INDUCED THROMBOCYTOPENIA [None]
  - VENOUS THROMBOSIS [None]
